FAERS Safety Report 18303104 (Version 1)
Quarter: 2020Q3

REPORT INFORMATION
  Report Type: Spontaneous
  Country: NL (occurrence: NL)
  Receive Date: 20200923
  Receipt Date: 20200923
  Transmission Date: 20201103
  Serious: Yes (Death, Life-Threatening, Hospitalization, Other)
  Sender: FDA-Public Use
  Company Number: NL-VELOXIS PHARMACEUTICALS-2019VELNL-000277

PATIENT
  Age: 5 Decade
  Sex: Male

DRUGS (9)
  1. RAMIPRIL. [Concomitant]
     Active Substance: RAMIPRIL
     Indication: HYPERTENSION
     Dosage: UNK
     Route: 065
     Dates: start: 2006
  2. ENVARSUS XR [Suspect]
     Active Substance: TACROLIMUS
     Indication: IMMUNOSUPPRESSANT DRUG THERAPY
     Dosage: UNK
     Route: 065
     Dates: start: 2007
  3. PREDNISOLONE. [Concomitant]
     Active Substance: PREDNISOLONE
     Indication: IMMUNOSUPPRESSANT DRUG THERAPY
     Dosage: UNK
     Route: 065
     Dates: start: 2007
  4. PREDNISOLONE. [Concomitant]
     Active Substance: PREDNISOLONE
     Indication: PROPHYLAXIS AGAINST TRANSPLANT REJECTION
  5. SIROLIMUS. [Concomitant]
     Active Substance: SIROLIMUS
     Indication: IMMUNOSUPPRESSANT DRUG THERAPY
     Dosage: UNK
     Route: 065
     Dates: start: 2007
  6. LABETALOL [Concomitant]
     Active Substance: LABETALOL\LABETALOL HYDROCHLORIDE
     Indication: HYPERTENSION
     Dosage: UNK
     Route: 065
     Dates: start: 2006
  7. LABETALOL [Concomitant]
     Active Substance: LABETALOL\LABETALOL HYDROCHLORIDE
     Indication: NEPHROSCLEROSIS
  8. ENVARSUS XR [Suspect]
     Active Substance: TACROLIMUS
     Indication: PROPHYLAXIS AGAINST TRANSPLANT REJECTION
  9. SIROLIMUS. [Concomitant]
     Active Substance: SIROLIMUS
     Indication: PROPHYLAXIS AGAINST TRANSPLANT REJECTION

REACTIONS (3)
  - Transitional cell carcinoma [Fatal]
  - Malignant transformation [Fatal]
  - Metastatic neoplasm [Fatal]
